FAERS Safety Report 22786665 (Version 10)
Quarter: 2024Q1

REPORT INFORMATION
  Report Type: Spontaneous
  Country: CA (occurrence: CA)
  Receive Date: 20230804
  Receipt Date: 20240306
  Transmission Date: 20240409
  Serious: Yes (Hospitalization, Other)
  Sender: FDA-Public Use
  Company Number: CA-CELLTRION INC.-2023CA004932

PATIENT

DRUGS (15)
  1. INFLECTRA [Suspect]
     Active Substance: INFLIXIMAB-DYYB
     Indication: Crohn^s disease
     Dosage: 600 MG, 10MG/KG 1 DOSE AT THE HOSPITAL
     Route: 042
     Dates: start: 20230222, end: 20230222
  2. INFLECTRA [Suspect]
     Active Substance: INFLIXIMAB-DYYB
     Dosage: 300 MG EVERY 2, 6, THEN EVERY 8 WEEKS
     Route: 042
     Dates: start: 20230310, end: 20230406
  3. INFLECTRA [Suspect]
     Active Substance: INFLIXIMAB-DYYB
     Dosage: 10 MG/KG, EVERY 8 WEEKS
     Route: 042
     Dates: start: 20230601
  4. INFLECTRA [Suspect]
     Active Substance: INFLIXIMAB-DYYB
     Dosage: 10 MG/KG, EVERY 8 WEEKS
     Route: 042
     Dates: start: 20230601
  5. INFLECTRA [Suspect]
     Active Substance: INFLIXIMAB-DYYB
     Dosage: 10 MG/KG, EVERY 8 WEEKS
     Route: 042
     Dates: start: 20230601, end: 20230727
  6. INFLECTRA [Suspect]
     Active Substance: INFLIXIMAB-DYYB
     Dosage: 590 MG, EVERY 8 WEEKS
     Route: 042
     Dates: start: 20230727
  7. INFLECTRA [Suspect]
     Active Substance: INFLIXIMAB-DYYB
     Dosage: 10 MG/KG (590 MG), ROUND UP DOSING TO THE NEAREST 100MG, AFTER 5 WEEK 5 DAYS
     Route: 042
     Dates: start: 20230905
  8. INFLECTRA [Suspect]
     Active Substance: INFLIXIMAB-DYYB
     Dosage: 10 MG/KG, ROUND UP DOSING TO THE NEAREST 100MG, EVERY 4 WEEKS
     Route: 042
     Dates: start: 20231005
  9. INFLECTRA [Suspect]
     Active Substance: INFLIXIMAB-DYYB
     Dosage: 600 MG, EVERY 4 WEEKS  (PRESCRIBED 10MG/KG ROUND UP DOSING TO THE NEAREST 100MG, EVERY 4 WEEKS)
     Route: 042
     Dates: start: 20231102
  10. INFLECTRA [Suspect]
     Active Substance: INFLIXIMAB-DYYB
     Dosage: 10 MG/KG, ROUND UP DOSING TO THE NEAREST 100MG, EVERY 4 WEEKS (600 MG 5 WEEKS)
     Route: 042
     Dates: start: 20231219
  11. INFLECTRA [Suspect]
     Active Substance: INFLIXIMAB-DYYB
     Dosage: 10 MG/KG, ROUND UP DOSING TO THE NEAREST 100MG, EVERY 4 WEEKS (590 MG, 4 WEEKS AND 2 DAYS )
     Route: 042
     Dates: start: 20240118
  12. INFLECTRA [Suspect]
     Active Substance: INFLIXIMAB-DYYB
     Dosage: 10 MG/KG, ROUND UP DOSING TO THE NEAREST 100MG, EVERY 4 WEEKS(590MG AFTER 5 WEEKS AND 4 DAYS)
     Route: 042
     Dates: start: 20240226
  13. PANTOPRAZOLE SODIUM [Concomitant]
     Active Substance: PANTOPRAZOLE SODIUM
     Dosage: UNK
  14. PROZAC [Concomitant]
     Active Substance: FLUOXETINE HYDROCHLORIDE
     Dosage: UNK
  15. PREDNISONE [Concomitant]
     Active Substance: PREDNISONE
     Dosage: UNK

REACTIONS (6)
  - Crohn^s disease [Unknown]
  - Condition aggravated [Recovering/Resolving]
  - Malaise [Unknown]
  - Off label use [Unknown]
  - Off label use [Unknown]
  - Inappropriate schedule of product administration [Unknown]

NARRATIVE: CASE EVENT DATE: 20230101
